FAERS Safety Report 9826291 (Version 1)
Quarter: 2014Q1

REPORT INFORMATION
  Report Type: Spontaneous
  Country: US (occurrence: US)
  Receive Date: 20140117
  Receipt Date: 20140117
  Transmission Date: 20141002
  Serious: No
  Sender: FDA-Public Use
  Company Number: US-BIOGENIDEC-2014BI000968

PATIENT
  Sex: Female

DRUGS (7)
  1. TECFIDERA [Suspect]
     Indication: MULTIPLE SCLEROSIS
     Route: 048
     Dates: start: 20131213, end: 20131219
  2. TECFIDERA [Suspect]
     Indication: MULTIPLE SCLEROSIS
     Route: 048
     Dates: start: 20131220
  3. KLONOPIN [Concomitant]
  4. ROPINIROLE HCL [Concomitant]
  5. TOPROL XL [Concomitant]
  6. PROZAC [Concomitant]
  7. VITAMIN D3 [Concomitant]

REACTIONS (6)
  - VIIth nerve paralysis [Unknown]
  - Dysgeusia [Unknown]
  - Muscle twitching [Unknown]
  - Burning sensation [Unknown]
  - Flushing [Unknown]
  - Nausea [Unknown]
